FAERS Safety Report 6209552-2 (Version None)
Quarter: 2009Q2

REPORT INFORMATION
  Report Type: 
  Country: None (occurrence: None)
  Receive Date: 20090601
  Receipt Date: 20090521
  Transmission Date: 20091009
  Serious: Yes (Other)
  Sender: FDA-Public Use
  Company Number: JP-ASTRAZENECA-2009AP03250

PATIENT
  Age: 43 Year
  Sex: Female

DRUGS (1)
  1. XYLOCAINE W/ EPINEPHRINE [Suspect]
     Dosage: DOSE UNKNOWN
     Route: 065
     Dates: start: 20070201, end: 20070201

REACTIONS (1)
  - OCULOMUCOCUTANEOUS SYNDROME [None]
